FAERS Safety Report 17087061 (Version 3)
Quarter: 2020Q2

REPORT INFORMATION
  Report Type: Report from Study
  Country: US (occurrence: US)
  Receive Date: 20191128
  Receipt Date: 20200430
  Transmission Date: 20200713
  Serious: Yes (Other)
  Sender: FDA-Public Use
  Company Number: US-TAIHO ONCOLOGY  INC-EU-2019-03920

PATIENT
  Sex: Female
  Weight: 76.27 kg

DRUGS (7)
  1. LONSURF [Suspect]
     Active Substance: TIPIRACIL HYDROCHLORIDE\TRIFLURIDINE
     Indication: COLON CANCER
  2. XARELTO [Concomitant]
     Active Substance: RIVAROXABAN
  3. LONSURF [Suspect]
     Active Substance: TIPIRACIL HYDROCHLORIDE\TRIFLURIDINE
     Indication: COLON CANCER
     Dosage: CURRENT CYCLE 4 STARTED ON 12/NOV/2019
     Route: 048
  4. BASAGLAR [Concomitant]
     Active Substance: INSULIN GLARGINE
  5. MULTIPLE VIT [Concomitant]
  6. LANTUS SOLOS [Concomitant]
  7. VITAMIN B12 [Concomitant]
     Active Substance: CYANOCOBALAMIN

REACTIONS (4)
  - Urethral neoplasm [Unknown]
  - Infection [Unknown]
  - Back pain [Unknown]
  - Stent placement [Unknown]
